FAERS Safety Report 19284728 (Version 2)
Quarter: 2023Q1

REPORT INFORMATION
  Report Type: Spontaneous
  Country: US (occurrence: US)
  Receive Date: 20210521
  Receipt Date: 20230313
  Transmission Date: 20230418
  Serious: Yes (Other)
  Sender: FDA-Public Use
  Company Number: US-BAYER-2021-143985

PATIENT

DRUGS (1)
  1. ALEVE [Suspect]
     Active Substance: NAPROXEN SODIUM
     Indication: Arthritis
     Dosage: 2 DF, OM
     Route: 065

REACTIONS (2)
  - Gastric haemorrhage [Recovered/Resolved]
  - Rectal haemorrhage [Unknown]
